FAERS Safety Report 8016880-7 (Version None)
Quarter: 2012Q1

REPORT INFORMATION
  Report Type: 
  Country: None (occurrence: None)
  Receive Date: 20120102
  Receipt Date: 20111220
  Transmission Date: 20120608
  Serious: Yes (Other)
  Sender: FDA-Public Use
  Company Number: PHHY2011JP96564

PATIENT
  Sex: Female

DRUGS (3)
  1. NEORAL [Suspect]
     Dosage: 50 MG, DAILY DIVIDED INTI TWO DOSES
     Route: 048
     Dates: start: 20110101, end: 20110101
  2. NEORAL [Suspect]
     Indication: SYSTEMIC LUPUS ERYTHEMATOSUS
     Dosage: 100 MG, DAILY DIVIDED INTI TWO DOSES
     Route: 048
     Dates: start: 20110101, end: 20110101
  3. NEORAL [Suspect]
     Dosage: UNK
     Route: 048
     Dates: start: 20111001

REACTIONS (2)
  - SUICIDE ATTEMPT [None]
  - INTENTIONAL OVERDOSE [None]
